FAERS Safety Report 5285512-3 (Version None)
Quarter: 2007Q1

REPORT INFORMATION
  Report Type: 
  Country: None (occurrence: None)
  Receive Date: 20061227
  Receipt Date: 20061101
  Transmission Date: 20070707
  Serious: Yes (Other)
  Sender: FDA-Public Use
  Company Number: A03200606606

PATIENT
  Sex: Female

DRUGS (2)
  1. AMBIEN [Suspect]
     Indication: INSOMNIA
     Dosage: 12.5 MG QD - ORAL
     Route: 048
     Dates: start: 20060101, end: 20061009
  2. BUPROPION HYDROCHLORIDE [Concomitant]

REACTIONS (2)
  - AMNESIA [None]
  - HALLUCINATION, VISUAL [None]
